FAERS Safety Report 12432516 (Version 1)
Quarter: 2016Q2

REPORT INFORMATION
  Report Type: Spontaneous
  Country: US (occurrence: None)
  Receive Date: 20160602
  Receipt Date: 20160602
  Transmission Date: 20160815
  Serious: No
  Sender: FDA-Public Use
  Company Number: None

PATIENT
  Age: 68 Year
  Sex: Female
  Weight: 84.82 kg

DRUGS (11)
  1. CO-Q10 [Concomitant]
  2. CETIRIZINE [Concomitant]
     Active Substance: CETIRIZINE HYDROCHLORIDE
  3. FISH OIL [Concomitant]
     Active Substance: FISH OIL
  4. ASPIRAN [Concomitant]
  5. ESTRADIOL. [Suspect]
     Active Substance: ESTRADIOL
     Indication: VULVOVAGINAL DRYNESS
     Route: 061
     Dates: start: 20160301
  6. BUPROPION. [Concomitant]
     Active Substance: BUPROPION
  7. NIACIN. [Concomitant]
     Active Substance: NIACIN
  8. DICLOPHENAE [Concomitant]
  9. HYDROCHLORITHIZIADE [Concomitant]
  10. ATORVASTATIN [Concomitant]
     Active Substance: ATORVASTATIN
  11. LEVOTHYROXINE. [Concomitant]
     Active Substance: LEVOTHYROXINE

REACTIONS (2)
  - Product adhesion issue [None]
  - Product quality issue [None]

NARRATIVE: CASE EVENT DATE: 20160520
